FAERS Safety Report 21321164 (Version 1)
Quarter: 2022Q3

REPORT INFORMATION
  Report Type: Report from Study
  Country: EG (occurrence: EG)
  Receive Date: 20220912
  Receipt Date: 20220912
  Transmission Date: 20221027
  Serious: Yes (Hospitalization, Other)
  Sender: FDA-Public Use
  Company Number: EG-NOVARTISPH-NVSC2022EG203475

PATIENT
  Age: 42 Year
  Sex: Male

DRUGS (15)
  1. ENTRESTO [Suspect]
     Active Substance: SACUBITRIL\VALSARTAN
     Indication: Cardiac failure
     Dosage: 1 DOSAGE FORM, BID
     Route: 048
     Dates: start: 202207
  2. TICAGRELOR [Concomitant]
     Active Substance: TICAGRELOR
     Indication: Hypertension
     Dosage: 1 DOSAGE FORM, Q12H
     Route: 048
  3. TICAGRELOR [Concomitant]
     Active Substance: TICAGRELOR
     Indication: Oedema
  4. ASPIRIN [Concomitant]
     Active Substance: ASPIRIN
     Indication: Oedema
     Dosage: 1 DOSAGE FORM, QD
     Route: 048
  5. ASPIRIN [Concomitant]
     Active Substance: ASPIRIN
     Indication: Hypertension
  6. CARVEDILOL [Concomitant]
     Active Substance: CARVEDILOL
     Indication: Hypertension
     Dosage: 1 DOSAGE FORM, Q12H
     Route: 048
  7. CARVEDILOL [Concomitant]
     Active Substance: CARVEDILOL
     Indication: Oedema
  8. CRESTOR [Concomitant]
     Active Substance: ROSUVASTATIN CALCIUM
     Indication: Oedema
     Dosage: 1 DOSAGE FORM, QD
     Route: 048
  9. CRESTOR [Concomitant]
     Active Substance: ROSUVASTATIN CALCIUM
     Indication: Hypertension
  10. IVABRADINE [Concomitant]
     Active Substance: IVABRADINE
     Indication: Hypertension
     Dosage: 1 DOSAGE FORM, Q12H
     Route: 048
  11. IVABRADINE [Concomitant]
     Active Substance: IVABRADINE
     Indication: Oedema
  12. EXAMIDE [Concomitant]
     Indication: Oedema
     Dosage: 1 DOSAGE FORM, QD
     Route: 048
  13. EXAMIDE [Concomitant]
     Indication: Hypertension
  14. PROTOFIX [Concomitant]
     Indication: Hypertension
     Dosage: 1 DOSAGE FORM, QD
     Route: 048
  15. PROTOFIX [Concomitant]
     Indication: Oedema

REACTIONS (3)
  - Pulmonary oedema [Recovering/Resolving]
  - Dyspnoea [Recovering/Resolving]
  - Drug ineffective [Not Recovered/Not Resolved]

NARRATIVE: CASE EVENT DATE: 20220701
